FAERS Safety Report 7150070-5 (Version None)
Quarter: 2010Q4

REPORT INFORMATION
  Report Type: 
  Country: None (occurrence: None)
  Receive Date: 20101210
  Receipt Date: 20101206
  Transmission Date: 20110411
  Serious: No
  Sender: FDA-Public Use
  Company Number: US-PFIZER INC-2010165575

PATIENT
  Sex: Female
  Weight: 47.619 kg

DRUGS (3)
  1. CHANTIX [Suspect]
     Indication: SMOKING CESSATION THERAPY
     Dosage: 0.5 MG, DAILY
     Route: 048
     Dates: start: 20101101
  2. IBUPROFEN [Concomitant]
     Indication: MUSCULOSKELETAL DISCOMFORT
     Dosage: 800 MG, UNK
  3. HYDROCODONE [Concomitant]
     Indication: MUSCULOSKELETAL DISCOMFORT
     Dosage: 10 MG, UNK

REACTIONS (3)
  - ABDOMINAL PAIN UPPER [None]
  - NAUSEA [None]
  - VOMITING [None]
